FAERS Safety Report 25933501 (Version 1)
Quarter: 2025Q4

REPORT INFORMATION
  Report Type: Spontaneous
  Country: US (occurrence: US)
  Receive Date: 20251017
  Receipt Date: 20251017
  Transmission Date: 20260117
  Serious: No
  Sender: LUPIN
  Company Number: US-LUPIN PHARMACEUTICALS INC.-2025-09298

PATIENT
  Sex: Male

DRUGS (1)
  1. LEVALBUTEROL TARTRATE [Suspect]
     Active Substance: LEVALBUTEROL TARTRATE
     Indication: Dyspnoea
     Dosage: UNK

REACTIONS (3)
  - Incorrect dose administered by device [Unknown]
  - Wrong technique in product usage process [Unknown]
  - No adverse event [Unknown]
